FAERS Safety Report 21356812 (Version 2)
Quarter: 2022Q4

REPORT INFORMATION
  Report Type: Spontaneous
  Country: AU (occurrence: AU)
  Receive Date: 20220920
  Receipt Date: 20221122
  Transmission Date: 20230113
  Serious: Yes (Other)
  Sender: FDA-Public Use
  Company Number: AU-BEH-2022149944

PATIENT
  Age: 29 Year
  Sex: Female
  Weight: 73 kg

DRUGS (2)
  1. RHOPHYLAC [Suspect]
     Active Substance: HUMAN RHO(D) IMMUNE GLOBULIN
     Indication: Foetal-maternal haemorrhage
     Dosage: 14100 INTERNATIONAL UNIT (19 MLS)
     Route: 042
     Dates: start: 20220912, end: 20220912
  2. RHOPHYLAC [Suspect]
     Active Substance: HUMAN RHO(D) IMMUNE GLOBULIN
     Indication: Foetal-maternal haemorrhage
     Dosage: 14100 INTERNATIONAL UNIT (19 MLS)
     Route: 042
     Dates: start: 20220912, end: 20220912

REACTIONS (5)
  - Chills [Recovered/Resolved]
  - Throat tightness [Recovered/Resolved]
  - Rash [Recovered/Resolved]
  - Hypertension [Recovered/Resolved]
  - Tachycardia [Recovered/Resolved]

NARRATIVE: CASE EVENT DATE: 20220912
